FAERS Safety Report 5146344-X (Version None)
Quarter: 2006Q4

REPORT INFORMATION
  Report Type: 
  Country: None (occurrence: None)
  Receive Date: 20061102
  Receipt Date: 20060906
  Transmission Date: 20070319
  Serious: Yes (Death, Hospitalization)
  Sender: FDA-Public Use
  Company Number: 2006119231

PATIENT
  Age: 77 Year
  Sex: Female
  Weight: 58.9676 kg

DRUGS (2)
  1. CELEBREX [Suspect]
     Indication: ARTHRITIS
     Dates: end: 20030909
  2. BEXTRA [Suspect]
     Indication: ARTHRITIS
     Dates: end: 20030909

REACTIONS (1)
  - CARDIAC FAILURE CONGESTIVE [None]
